FAERS Safety Report 18894770 (Version 1)
Quarter: 2021Q1

REPORT INFORMATION
  Report Type: Spontaneous
  Country: PL (occurrence: PL)
  Receive Date: 20210216
  Receipt Date: 20210216
  Transmission Date: 20210420
  Serious: Yes (Life-Threatening, Hospitalization, Other)
  Sender: FDA-Public Use
  Company Number: PL-VALIDUS PHARMACEUTICALS LLC-PL-2021VAL000068

PATIENT
  Age: 79 Year
  Sex: Male

DRUGS (8)
  1. ACETYLSALICYLIC ACID [Concomitant]
     Active Substance: ASPIRIN
     Indication: PRODUCT USED FOR UNKNOWN INDICATION
     Dosage: UNK
  2. BISOPROLOL [Concomitant]
     Active Substance: BISOPROLOL
     Indication: PRODUCT USED FOR UNKNOWN INDICATION
     Dosage: UNK
  3. RAMIPRIL. [Concomitant]
     Active Substance: RAMIPRIL
     Indication: PRODUCT USED FOR UNKNOWN INDICATION
     Dosage: UNK
  4. GLICLAZIDE [Concomitant]
     Active Substance: GLICLAZIDE
     Indication: PRODUCT USED FOR UNKNOWN INDICATION
     Dosage: UNK
  5. EPLERENONE. [Suspect]
     Active Substance: EPLERENONE
     Indication: PULMONARY OEDEMA
     Dosage: EPLERENONE 25 MG
     Route: 048
  6. FUROSEMIDE. [Suspect]
     Active Substance: FUROSEMIDE
     Indication: PULMONARY OEDEMA
     Dosage: FUROSEMIDE 2 X 40 MG
     Route: 048
  7. METFORMIN [Concomitant]
     Active Substance: METFORMIN HYDROCHLORIDE
     Indication: PRODUCT USED FOR UNKNOWN INDICATION
     Dosage: UNK
  8. ATORVASTATIN [Concomitant]
     Active Substance: ATORVASTATIN
     Indication: PRODUCT USED FOR UNKNOWN INDICATION
     Dosage: UNK

REACTIONS (15)
  - Neurological symptom [Unknown]
  - Blood glucose increased [Unknown]
  - Somnolence [Unknown]
  - Asthenia [Unknown]
  - Dehydration [Unknown]
  - Intentional overdose [Unknown]
  - Hypovolaemia [Unknown]
  - Brain oedema [Unknown]
  - Dyspnoea [Unknown]
  - Acute kidney injury [Unknown]
  - Loss of consciousness [Unknown]
  - Hypotension [Unknown]
  - Ischaemic stroke [Unknown]
  - Polyuria [Unknown]
  - Central venous pressure decreased [Unknown]
